FAERS Safety Report 6447963-0 (Version None)
Quarter: 2009Q4

REPORT INFORMATION
  Report Type: 
  Country: None (occurrence: None)
  Receive Date: 20091120
  Receipt Date: 20091111
  Transmission Date: 20100525
  Serious: Yes (Other)
  Sender: FDA-Public Use
  Company Number: GB-JNJFOC-20091103634

PATIENT
  Age: 46 Year
  Sex: Female
  Weight: 97 kg

DRUGS (7)
  1. REMICADE [Suspect]
     Indication: RHEUMATOID ARTHRITIS
     Route: 042
     Dates: start: 20050421
  2. METHOTREXATE [Concomitant]
  3. PREDNISOLONE [Concomitant]
  4. CALCICHEW [Concomitant]
  5. CARBAMAZEPINE [Concomitant]
  6. FOLIC ACID [Concomitant]
  7. FOSAMAX [Concomitant]

REACTIONS (1)
  - COLON CANCER [None]
